FAERS Safety Report 13948432 (Version 1)
Quarter: 2017Q3

REPORT INFORMATION
  Report Type: Spontaneous
  Country: US (occurrence: None)
  Receive Date: 20170907
  Receipt Date: 20170907
  Transmission Date: 20171128
  Serious: No
  Sender: FDA-Public Use
  Company Number: None

PATIENT
  Age: 56 Year
  Sex: Male

DRUGS (1)
  1. STIVARGA [Suspect]
     Active Substance: REGORAFENIB
     Indication: COLON CANCER
     Route: 048
     Dates: start: 20170602

REACTIONS (6)
  - Pain [None]
  - Gingival discomfort [None]
  - Nausea [None]
  - Joint swelling [None]
  - Peripheral swelling [None]
  - Tongue discomfort [None]
